FAERS Safety Report 7564523-9 (Version None)
Quarter: 2011Q2

REPORT INFORMATION
  Report Type: 
  Country: None (occurrence: None)
  Receive Date: 20110622
  Receipt Date: 20100727
  Transmission Date: 20111010
  Serious: Yes (Other)
  Sender: FDA-Public Use
  Company Number: US-MYLANLABS-2010S1007968

PATIENT
  Age: 59 Year
  Sex: Male

DRUGS (11)
  1. OMEPRAZOLE [Concomitant]
     Route: 048
  2. MULTI-VITAMINS [Concomitant]
     Route: 048
  3. AMBIEN [Concomitant]
     Route: 048
  4. LISINOPRIL [Concomitant]
     Route: 048
  5. ATIVAN [Concomitant]
     Route: 048
  6. CLOZAPINE [Suspect]
     Route: 048
     Dates: start: 20100118, end: 20100604
  7. LEVOTHYROXINE SODIUM [Concomitant]
     Route: 048
  8. CLOZAPINE [Suspect]
     Indication: SCHIZOPHRENIA
     Route: 048
     Dates: start: 20100118, end: 20100604
  9. RISPERDAL [Concomitant]
     Route: 048
  10. PERPHENAZINE [Concomitant]
     Route: 048
  11. FISH OIL [Concomitant]
     Route: 048

REACTIONS (2)
  - GRANULOCYTOPENIA [None]
  - WHITE BLOOD CELL COUNT DECREASED [None]
